FAERS Safety Report 13402952 (Version 1)
Quarter: 2017Q2

REPORT INFORMATION
  Report Type: Spontaneous
  Country: US (occurrence: US)
  Receive Date: 20170404
  Receipt Date: 20170404
  Transmission Date: 20170830
  Serious: Yes (Other)
  Sender: FDA-Public Use
  Company Number: US-ROCHE-1794965

PATIENT
  Sex: Female

DRUGS (1)
  1. AVASTIN [Suspect]
     Active Substance: BEVACIZUMAB
     Indication: PRODUCT USED FOR UNKNOWN INDICATION
     Route: 050
     Dates: start: 20140724, end: 20160510

REACTIONS (4)
  - Product contamination physical [Unknown]
  - Vitreous floaters [Unknown]
  - Eye disorder [Recovered/Resolved with Sequelae]
  - Product quality issue [Unknown]
